FAERS Safety Report 8567686-1 (Version None)
Quarter: 2012Q3

REPORT INFORMATION
  Report Type: 
  Country: None (occurrence: None)
  Receive Date: 20120803
  Receipt Date: 20120723
  Transmission Date: 20120928
  Serious: Yes (Other)
  Sender: FDA-Public Use
  Company Number: US-ELI_LILLY_AND_COMPANY-US201207007476

PATIENT
  Sex: Female
  Weight: 106.58 kg

DRUGS (20)
  1. CYMBALTA [Suspect]
     Indication: DEPRESSION
     Dosage: 60 MG, QD
  2. IRON [Concomitant]
  3. LOSARTAN POTASSIUM [Concomitant]
     Indication: BLOOD PRESSURE ABNORMAL
     Dosage: 1 DF, QD
  4. MULTI-VITAMIN [Concomitant]
  5. POTASSIUM [Concomitant]
     Dosage: 1 DF, BID
  6. LASIX [Concomitant]
     Dosage: 80 MG, UNK
  7. TRAMADOL HCL [Concomitant]
     Dosage: 50 MG, QID
  8. OMEPRAZOLE [Concomitant]
     Indication: GASTROOESOPHAGEAL REFLUX DISEASE
     Dosage: 40 MG, BID
  9. LEVOTHYROXINE SODIUM [Concomitant]
     Indication: HYPOTHYROIDISM
     Dosage: 137 DF, QD
  10. FISH OIL [Concomitant]
     Dosage: 1 DF, BID
  11. VITAMIN B 12 LICHTENSTEIN [Concomitant]
  12. BISOPROLOL FUMARATE [Concomitant]
     Indication: CARDIAC DISORDER
     Dosage: 5 MG, QD
  13. METHOCARBAMOL [Concomitant]
     Dosage: 75 MG, QD
  14. MAGNESIUM [Concomitant]
     Dosage: 250 MG, UNKNOWN
  15. LIPITOR [Concomitant]
     Indication: BLOOD CHOLESTEROL INCREASED
     Dosage: 40 MG, QD
  16. VITAMIN B COMPLEX CAP [Concomitant]
  17. METFORMIN HYDROCHLORIDE [Concomitant]
     Indication: DIABETES MELLITUS
     Dosage: 500 MG, BID
  18. ZETIA [Concomitant]
     Dosage: 5 MG, QD
  19. ASPIRIN [Concomitant]
  20. SYMBICORT [Concomitant]
     Indication: ASTHMA
     Dosage: 1 DF, QD

REACTIONS (2)
  - HEPATIC CIRRHOSIS [None]
  - DRUG INEFFECTIVE [None]
